FAERS Safety Report 6019055-6 (Version None)
Quarter: 2008Q4

REPORT INFORMATION
  Report Type: 
  Country: None (occurrence: None)
  Receive Date: 20081224
  Receipt Date: 20081209
  Transmission Date: 20090506
  Serious: Yes (Hospitalization)
  Sender: FDA-Public Use
  Company Number: GB-PFIZER INC-2008094984

PATIENT
  Age: 72 Year
  Sex: Female

DRUGS (6)
  1. CYCLOPHOSPHAMIDE [Suspect]
     Indication: GLOMERULONEPHRITIS
     Dosage: 500 MG
     Route: 042
  2. CYCLOPHOSPHAMIDE [Suspect]
     Indication: WEGENER'S GRANULOMATOSIS
  3. METHYLPREDNISOLONE ACETATE [Concomitant]
     Indication: GLOMERULONEPHRITIS
     Route: 048
  4. METHYLPREDNISOLONE ACETATE [Concomitant]
     Indication: WEGENER'S GRANULOMATOSIS
  5. PREDNISOLONE [Concomitant]
     Indication: GLOMERULONEPHRITIS
     Dosage: 30 MG, ONCE EVERY DAY
     Route: 048
  6. PREDNISOLONE [Concomitant]
     Indication: WEGENER'S GRANULOMATOSIS
     Dosage: 10 MG
     Route: 048

REACTIONS (1)
  - DIFFUSE LARGE B-CELL LYMPHOMA [None]
